FAERS Safety Report 7153193-X (Version None)
Quarter: 2010Q4

REPORT INFORMATION
  Report Type: 
  Country: None (occurrence: None)
  Receive Date: 20101213
  Receipt Date: 20101129
  Transmission Date: 20110411
  Serious: Yes (Hospitalization)
  Sender: FDA-Public Use
  Company Number: IT-ELI_LILLY_AND_COMPANY-IT201011007523

PATIENT
  Sex: Female

DRUGS (10)
  1. CYMBALTA [Suspect]
     Indication: DEPRESSION
     Dosage: 1 D/F, UNK
     Route: 048
     Dates: start: 20101026, end: 20101026
  2. INSULIN [Concomitant]
  3. TICLODIPINE [Concomitant]
  4. OMEPRAZOLE [Concomitant]
  5. FUROSEMIDE [Concomitant]
  6. PHYSIOTENS [Concomitant]
  7. VALSARTAN  AND HYDROCHLOROTHIAZIDE [Concomitant]
  8. PLACTIDIL [Concomitant]
  9. MEDIPO [Concomitant]
  10. JUMEX [Concomitant]

REACTIONS (6)
  - CHEST DISCOMFORT [None]
  - HEADACHE [None]
  - HYPERHIDROSIS [None]
  - SPEECH DISORDER [None]
  - TREMOR [None]
  - VISUAL IMPAIRMENT [None]
